FAERS Safety Report 18998305 (Version 2)
Quarter: 2021Q1

REPORT INFORMATION
  Report Type: Spontaneous
  Country: TW (occurrence: TW)
  Receive Date: 20210311
  Receipt Date: 20210318
  Transmission Date: 20210420
  Serious: Yes (Hospitalization)
  Sender: FDA-Public Use
  Company Number: TW-B.I. PHARMACEUTICALS,INC./RIDGEFIELD-2021-BI-088607

PATIENT
  Sex: Male

DRUGS (1)
  1. NON?BI DRUG [Suspect]
     Active Substance: UNSPECIFIED INGREDIENT
     Indication: DIABETES MELLITUS

REACTIONS (1)
  - Dysuria [Recovered/Resolved with Sequelae]

NARRATIVE: CASE EVENT DATE: 202102
